FAERS Safety Report 10209554 (Version 1)
Quarter: 2014Q2

REPORT INFORMATION
  Report Type: Report from Study
  Country: US (occurrence: US)
  Receive Date: 20140602
  Receipt Date: 20140602
  Transmission Date: 20141212
  Serious: Yes (Other)
  Sender: FDA-Public Use
  Company Number: US-ROCHE-1404925

PATIENT
  Sex: Female
  Weight: 78.09 kg

DRUGS (4)
  1. HERCEPTIN [Suspect]
     Indication: BREAST CANCER METASTATIC
     Route: 042
     Dates: start: 200906
  2. HERCEPTIN [Suspect]
     Route: 042
  3. LISINOPRIL [Concomitant]
     Indication: BLOOD PRESSURE
     Route: 048
  4. BABY ASA [Concomitant]
     Route: 048

REACTIONS (6)
  - Paraesthesia [Not Recovered/Not Resolved]
  - Temperature intolerance [Not Recovered/Not Resolved]
  - Temperature intolerance [Not Recovered/Not Resolved]
  - Grip strength decreased [Not Recovered/Not Resolved]
  - Hypertension [Not Recovered/Not Resolved]
  - Hypoaesthesia [Unknown]
